FAERS Safety Report 11930323 (Version 3)
Quarter: 2018Q1

REPORT INFORMATION
  Report Type: Spontaneous
  Country: US (occurrence: US)
  Receive Date: 20160120
  Receipt Date: 20180207
  Transmission Date: 20180508
  Serious: Yes (Hospitalization, Disabling, Other)
  Sender: FDA-Public Use
  Company Number: US-PFIZER INC-2016023529

PATIENT
  Age: 57 Year
  Sex: Male

DRUGS (16)
  1. ANDROGEL [Suspect]
     Active Substance: TESTOSTERONE
     Indication: ERECTILE DYSFUNCTION
     Dosage: UNK, 2X/DAY (2 TIMES PER DAY) (1.62%)
     Dates: start: 20111017
  2. ANDROGEL [Suspect]
     Active Substance: TESTOSTERONE
     Dosage: UNK, EIGHT TIMES PER DAY (1.62%)
     Dates: start: 20111128
  3. AXIRON [Suspect]
     Active Substance: TESTOSTERONE
     Indication: ERECTILE DYSFUNCTION
     Dosage: 30 MG, 2X/DAY (TWO TIMES PER DAY)
     Dates: start: 20130317
  4. HYDROCHLOROTHIAZIDE. [Concomitant]
     Active Substance: HYDROCHLOROTHIAZIDE
     Indication: HYPERTENSION
     Dosage: UNK
     Dates: start: 2001
  5. ANDROGEL [Suspect]
     Active Substance: TESTOSTERONE
     Dosage: UNK, 2X/DAY (2 TIMES PER DAY) (1.62%)
     Dates: start: 20121227, end: 201301
  6. AXIRON [Suspect]
     Active Substance: TESTOSTERONE
     Dosage: 30 MG, 2X/DAY
     Dates: start: 20130426
  7. AXIRON [Suspect]
     Active Substance: TESTOSTERONE
     Dosage: 30 MG, 2X/DAY (TWO TIMES PER DAY)
     Dates: start: 20130408
  8. AXIRON [Suspect]
     Active Substance: TESTOSTERONE
     Dosage: 30 MG, 2X/DAY (TWO TIMES PER DAY)
     Dates: start: 20131017
  9. AXIRON [Suspect]
     Active Substance: TESTOSTERONE
     Dosage: 30 MG, 2X/DAY (TWO TIMES PER DAY)
     Dates: start: 20140114, end: 20140114
  10. LOSARTAN. [Concomitant]
     Active Substance: LOSARTAN
     Indication: HYPERTENSION
     Dosage: UNK
     Dates: start: 2001
  11. DEPO-TESTOSTERONE [Suspect]
     Active Substance: TESTOSTERONE CYPIONATE
     Indication: HORMONE REPLACEMENT THERAPY
     Dosage: UNK
     Dates: start: 201109, end: 201411
  12. AXIRON [Suspect]
     Active Substance: TESTOSTERONE
     Indication: HORMONE REPLACEMENT THERAPY
     Dosage: 30 MG, 2X/DAY (TWO TIMES PER DAY)
     Dates: start: 20130214
  13. DEPO-TESTOSTERONE [Suspect]
     Active Substance: TESTOSTERONE CYPIONATE
     Dosage: UNK
     Dates: start: 20140815, end: 20141106
  14. ANDROGEL [Suspect]
     Active Substance: TESTOSTERONE
     Indication: HORMONE REPLACEMENT THERAPY
     Dosage: UNK, 2X/DAY (2 TIMES PER DAY) (1.62%)
     Dates: start: 20110904
  15. AXIRON [Suspect]
     Active Substance: TESTOSTERONE
     Dosage: 30 MG, 2X/DAY (TWO TIMES PER DAY)
     Dates: start: 20130705
  16. PRILOSEC [Concomitant]
     Active Substance: OMEPRAZOLE MAGNESIUM
     Indication: DYSPEPSIA
     Dosage: UNK
     Dates: start: 2005

REACTIONS (8)
  - Abdominal pain upper [Unknown]
  - Dyspnoea [Not Recovered/Not Resolved]
  - Chest pain [Unknown]
  - Decreased activity [Unknown]
  - Asthenia [Unknown]
  - Pulmonary embolism [Unknown]
  - Decreased appetite [Unknown]
  - Loss of personal independence in daily activities [Unknown]

NARRATIVE: CASE EVENT DATE: 20141206
